FAERS Safety Report 6235757-0 (Version None)
Quarter: 2009Q2

REPORT INFORMATION
  Report Type: 
  Country: None (occurrence: None)
  Receive Date: 20090617
  Receipt Date: 20090610
  Transmission Date: 20091009
  Serious: Yes (Other)
  Sender: FDA-Public Use
  Company Number: 2009SP001368

PATIENT
  Sex: Female

DRUGS (4)
  1. NASONEX [Suspect]
     Indication: ASTHMA
     Dosage: 2 DF; QD; NAS
     Route: 045
     Dates: start: 20080414, end: 20081115
  2. NASONEX [Suspect]
     Indication: NASAL CONGESTION
     Dosage: 2 DF; QD; NAS
     Route: 045
     Dates: start: 20080414, end: 20081115
  3. SINGULAIR [Concomitant]
  4. ADVAIR HFA [Concomitant]

REACTIONS (7)
  - ACTIVITIES OF DAILY LIVING IMPAIRED [None]
  - AGEUSIA [None]
  - ANOSMIA [None]
  - DISCOMFORT [None]
  - INJURY [None]
  - MALAISE [None]
  - PAIN [None]
